FAERS Safety Report 12745181 (Version 1)
Quarter: 2016Q3

REPORT INFORMATION
  Report Type: Report from Study
  Country: US (occurrence: US)
  Receive Date: 20160915
  Receipt Date: 20160915
  Transmission Date: 20161109
  Serious: Yes (Life-Threatening, Hospitalization, Other)
  Sender: FDA-Public Use
  Company Number: US-ROCHE-1073285

PATIENT
  Age: 52 Year
  Sex: Male
  Weight: 84.1 kg

DRUGS (57)
  1. BEVACIZUMAB [Suspect]
     Active Substance: BEVACIZUMAB
     Dosage: COURSE 2
     Route: 042
     Dates: start: 20101018
  2. LENALIDOMIDE [Suspect]
     Active Substance: LENALIDOMIDE
     Dosage: COURSE 13
     Route: 048
     Dates: start: 20110606
  3. PREDNISONE. [Suspect]
     Active Substance: PREDNISONE
     Dosage: COURSE 11
     Route: 048
     Dates: start: 20110426
  4. PREDNISONE. [Suspect]
     Active Substance: PREDNISONE
     Dosage: COURSE 20
     Route: 048
     Dates: start: 20111107
  5. BEVACIZUMAB [Suspect]
     Active Substance: BEVACIZUMAB
     Indication: PROSTATE CANCER
     Route: 042
     Dates: start: 20110928
  6. BEVACIZUMAB [Suspect]
     Active Substance: BEVACIZUMAB
     Dosage: COURSE 11
     Route: 042
     Dates: start: 20110426
  7. DOCETAXEL. [Suspect]
     Active Substance: DOCETAXEL
     Dosage: COURSE 5
     Route: 042
     Dates: start: 20101220
  8. DOCETAXEL. [Suspect]
     Active Substance: DOCETAXEL
     Dosage: COURSE 6
     Route: 042
     Dates: start: 20110110
  9. DOCETAXEL. [Suspect]
     Active Substance: DOCETAXEL
     Dosage: COURSE 12
     Route: 042
     Dates: start: 20110516
  10. DOCETAXEL. [Suspect]
     Active Substance: DOCETAXEL
     Dosage: COURSE 18
     Route: 042
     Dates: start: 20110926
  11. LENALIDOMIDE [Suspect]
     Active Substance: LENALIDOMIDE
     Indication: PROSTATE CANCER
     Route: 048
     Dates: start: 20110928
  12. LENALIDOMIDE [Suspect]
     Active Substance: LENALIDOMIDE
     Dosage: COURSE 1
     Route: 048
     Dates: start: 20100928
  13. LENALIDOMIDE [Suspect]
     Active Substance: LENALIDOMIDE
     Dosage: COURSE 6
     Route: 048
     Dates: start: 20110110
  14. LENALIDOMIDE [Suspect]
     Active Substance: LENALIDOMIDE
     Dosage: COURSE 12
     Route: 048
     Dates: start: 20110516
  15. PREDNISONE. [Suspect]
     Active Substance: PREDNISONE
     Dosage: COURSE 1
     Route: 048
     Dates: start: 20100928
  16. PREDNISONE. [Suspect]
     Active Substance: PREDNISONE
     Dosage: COURSE 9
     Route: 048
     Dates: start: 20110314
  17. PREDNISONE. [Suspect]
     Active Substance: PREDNISONE
     Dosage: COURSE 12
     Route: 048
     Dates: start: 20110516
  18. PREDNISONE. [Suspect]
     Active Substance: PREDNISONE
     Dosage: COURSE 19
     Route: 048
     Dates: start: 20111017
  19. PREDNISONE. [Suspect]
     Active Substance: PREDNISONE
     Dosage: COURSE 21
     Route: 048
     Dates: start: 20111129
  20. BEVACIZUMAB [Suspect]
     Active Substance: BEVACIZUMAB
     Dosage: COURSE 18
     Route: 042
     Dates: start: 20110926
  21. BEVACIZUMAB [Suspect]
     Active Substance: BEVACIZUMAB
     Dosage: COURSE 20
     Route: 042
     Dates: start: 20111107
  22. DOCETAXEL. [Suspect]
     Active Substance: DOCETAXEL
     Indication: PROSTATE CANCER
     Route: 042
     Dates: start: 20110928
  23. LENALIDOMIDE [Suspect]
     Active Substance: LENALIDOMIDE
     Dosage: COURSE 2
     Route: 048
     Dates: start: 20101018
  24. LENALIDOMIDE [Suspect]
     Active Substance: LENALIDOMIDE
     Dosage: COURSE 11
     Route: 048
     Dates: start: 20110426
  25. LENALIDOMIDE [Suspect]
     Active Substance: LENALIDOMIDE
     Dosage: COURSE 21
     Route: 048
     Dates: start: 20111129
  26. PREDNISONE. [Suspect]
     Active Substance: PREDNISONE
     Dosage: COURSE 2
     Route: 048
     Dates: start: 20101018
  27. PREDNISONE. [Suspect]
     Active Substance: PREDNISONE
     Dosage: COURSE 5
     Route: 048
     Dates: start: 20101220
  28. BEVACIZUMAB [Suspect]
     Active Substance: BEVACIZUMAB
     Dosage: COURSE 5
     Route: 042
     Dates: start: 20101220
  29. BEVACIZUMAB [Suspect]
     Active Substance: BEVACIZUMAB
     Dosage: COURSE 12
     Route: 042
     Dates: start: 20110516
  30. BEVACIZUMAB [Suspect]
     Active Substance: BEVACIZUMAB
     Dosage: COURSE 16
     Route: 042
     Dates: start: 20110808
  31. DOCETAXEL. [Suspect]
     Active Substance: DOCETAXEL
     Dosage: COURSE 3
     Route: 042
     Dates: start: 20101109
  32. DOCETAXEL. [Suspect]
     Active Substance: DOCETAXEL
     Dosage: COURSE 16
     Route: 042
     Dates: start: 20110808
  33. DOCETAXEL. [Suspect]
     Active Substance: DOCETAXEL
     Dosage: COURSE 19
     Route: 042
     Dates: start: 20111017
  34. PREDNISONE. [Suspect]
     Active Substance: PREDNISONE
     Indication: PROSTATE CANCER
     Route: 048
     Dates: start: 20110928
  35. PREDNISONE. [Suspect]
     Active Substance: PREDNISONE
     Dosage: COURSE 6
     Route: 048
     Dates: start: 20110110
  36. BEVACIZUMAB [Suspect]
     Active Substance: BEVACIZUMAB
     Dosage: COURSE 1
     Route: 042
     Dates: start: 20100928
  37. BEVACIZUMAB [Suspect]
     Active Substance: BEVACIZUMAB
     Dosage: COURSE 6
     Route: 042
     Dates: start: 20110110
  38. BEVACIZUMAB [Suspect]
     Active Substance: BEVACIZUMAB
     Dosage: COURSE 13
     Route: 042
     Dates: start: 20110606
  39. DOCETAXEL. [Suspect]
     Active Substance: DOCETAXEL
     Dosage: COURSE 2
     Route: 042
     Dates: start: 20101018
  40. LENALIDOMIDE [Suspect]
     Active Substance: LENALIDOMIDE
     Dosage: COURSE 19
     Route: 048
     Dates: start: 20111017
  41. LENALIDOMIDE [Suspect]
     Active Substance: LENALIDOMIDE
     Dosage: COURSE 20
     Route: 048
     Dates: start: 20111107
  42. BEVACIZUMAB [Suspect]
     Active Substance: BEVACIZUMAB
     Dosage: COURSE 3
     Route: 042
     Dates: start: 20101109
  43. DOCETAXEL. [Suspect]
     Active Substance: DOCETAXEL
     Dosage: COURSE 1
     Route: 042
     Dates: start: 20100928
  44. DOCETAXEL. [Suspect]
     Active Substance: DOCETAXEL
     Dosage: COURSE 11
     Route: 042
     Dates: start: 20110426
  45. DOCETAXEL. [Suspect]
     Active Substance: DOCETAXEL
     Dosage: COURSE 20
     Route: 042
     Dates: start: 20111107
  46. LENALIDOMIDE [Suspect]
     Active Substance: LENALIDOMIDE
     Dosage: COURSE 18
     Route: 048
     Dates: start: 20110926
  47. PREDNISONE. [Suspect]
     Active Substance: PREDNISONE
     Dosage: COURSE 3
     Route: 048
     Dates: start: 20101109
  48. PREDNISONE. [Suspect]
     Active Substance: PREDNISONE
     Dosage: COURSE 16
     Route: 048
     Dates: start: 20110808
  49. PREDNISONE. [Suspect]
     Active Substance: PREDNISONE
     Dosage: COURSE 18
     Route: 048
     Dates: start: 20110926
  50. BEVACIZUMAB [Suspect]
     Active Substance: BEVACIZUMAB
     Dosage: COURSE 9
     Route: 042
     Dates: start: 20110314
  51. DOCETAXEL. [Suspect]
     Active Substance: DOCETAXEL
     Dosage: COURSE 13
     Route: 042
     Dates: start: 20110606
  52. LENALIDOMIDE [Suspect]
     Active Substance: LENALIDOMIDE
     Dosage: COURSE 3
     Route: 048
     Dates: start: 20101109
  53. LENALIDOMIDE [Suspect]
     Active Substance: LENALIDOMIDE
     Dosage: COURSE 9
     Route: 048
     Dates: start: 20110314
  54. DOCETAXEL. [Suspect]
     Active Substance: DOCETAXEL
     Dosage: COURSE 9
     Route: 042
     Dates: start: 20110314
  55. DOCETAXEL. [Suspect]
     Active Substance: DOCETAXEL
     Dosage: COURSE 21
     Route: 042
     Dates: start: 20111129
  56. LENALIDOMIDE [Suspect]
     Active Substance: LENALIDOMIDE
     Dosage: COURSE 5
     Route: 048
     Dates: start: 20101220
  57. PREDNISONE. [Suspect]
     Active Substance: PREDNISONE
     Dosage: COURSE 13
     Route: 048
     Dates: start: 20110606

REACTIONS (9)
  - Febrile neutropenia [Recovered/Resolved with Sequelae]
  - Febrile neutropenia [Unknown]
  - Neutrophil count decreased [Unknown]
  - Urinary tract obstruction [Unknown]
  - Urinary retention [Unknown]
  - Presyncope [Unknown]
  - Anaemia [Unknown]
  - Neutrophil count decreased [Recovered/Resolved with Sequelae]
  - Syncope [Unknown]

NARRATIVE: CASE EVENT DATE: 20111112
